FAERS Safety Report 14998080 (Version 2)
Quarter: 2018Q2

REPORT INFORMATION
  Report Type: Spontaneous
  Country: US (occurrence: US)
  Receive Date: 20180611
  Receipt Date: 20180629
  Transmission Date: 20180711
  Serious: No
  Sender: FDA-Public Use
  Company Number: US-ACTELION-A-US2018-173459

PATIENT
  Age: 1 Year
  Sex: Male

DRUGS (12)
  1. SPIRONOLACTONE. [Concomitant]
     Active Substance: SPIRONOLACTONE
     Dosage: 2 ML, BID
  2. ASPIRIN 81 [Concomitant]
     Active Substance: ASPIRIN
     Dosage: 81 MG, UNK
     Route: 048
  3. LEVOCARNITINE. [Concomitant]
     Active Substance: LEVOCARNITINE
     Dosage: 2.4 ML, BID
     Route: 048
  4. POTASSIUM CHLORIDE. [Concomitant]
     Active Substance: POTASSIUM CHLORIDE
     Dosage: 12 ML, UNK
     Route: 048
  5. DIURIL [Concomitant]
     Active Substance: CHLOROTHIAZIDE
     Dosage: 1.6 ML, PRN
     Route: 048
  6. NIACIN. [Concomitant]
     Active Substance: NIACIN
     Dosage: 0.5 MG, UNK
  7. TRACLEER [Suspect]
     Active Substance: BOSENTAN
     Indication: PULMONARY ARTERIAL HYPERTENSION
     Dosage: 31.25 MG, BID
     Route: 048
     Dates: start: 20180316
  8. OMEPRAZOLE. [Concomitant]
     Active Substance: OMEPRAZOLE
     Dosage: 5 ML, BID
  9. BUMEX [Concomitant]
     Active Substance: BUMETANIDE
     Dosage: 1 MG, TID
     Route: 048
  10. COREG [Concomitant]
     Active Substance: CARVEDILOL
     Dosage: 2 MG, BID
     Route: 048
  11. POLY VI SOL [Concomitant]
     Dosage: 1 ML, UNK
     Route: 048
  12. SILDENAFIL. [Concomitant]
     Active Substance: SILDENAFIL
     Dosage: 1 ML, TID
     Route: 048

REACTIONS (2)
  - Tooth discolouration [Not Recovered/Not Resolved]
  - Gastrointestinal tube insertion [Unknown]

NARRATIVE: CASE EVENT DATE: 20180515
